FAERS Safety Report 10164096 (Version 2)
Quarter: 2014Q2

REPORT INFORMATION
  Report Type: Spontaneous
  Country: US (occurrence: US)
  Receive Date: 20140510
  Receipt Date: 20140510
  Transmission Date: 20141212
  Serious: No
  Sender: FDA-Public Use
  Company Number: US-BRISTOL-MYERS SQUIBB COMPANY-19925221

PATIENT
  Age: 73 Year
  Sex: Male
  Weight: 102.94 kg

DRUGS (9)
  1. BYETTA PEN DISPOSABLE [Suspect]
  2. METFORMIN [Concomitant]
  3. DIOVAN [Concomitant]
  4. LEVOTHYROXINE [Concomitant]
  5. NEXIUM [Concomitant]
  6. FLUOXETINE [Concomitant]
  7. DOXYCYCLINE [Concomitant]
  8. TAMSULOSIN [Concomitant]
  9. SIMVASTATIN [Concomitant]

REACTIONS (1)
  - Drug dose omission [Unknown]
